FAERS Safety Report 9252482 (Version 1)
Quarter: 2013Q2

REPORT INFORMATION
  Report Type: Report from Study
  Country: US (occurrence: US)
  Receive Date: 20130424
  Receipt Date: 20130424
  Transmission Date: 20140414
  Serious: Yes (Other)
  Sender: FDA-Public Use
  Company Number: PHEH2013US008366

PATIENT
  Sex: Female
  Weight: 73 kg

DRUGS (10)
  1. GLEEVEC [Suspect]
     Indication: GASTRIC CANCER
     Dosage: 400 MG, DAILY
     Route: 048
  2. ASPIRIN [Concomitant]
     Dosage: 1 DF, QD
     Route: 048
  3. LISINOPRIL [Concomitant]
     Dosage: 1 DF QD
  4. AMIODARONE HCL [Concomitant]
     Dosage: UNK UKN, UNK
     Route: 048
  5. METOPROLOL TARTRATO [Concomitant]
     Dosage: UNK UKN, UNK
     Route: 048
  6. PRADAXA [Concomitant]
     Dosage: 1 DF, BID
     Route: 048
  7. PROCHLORPERAZINE [Concomitant]
     Dosage: 01 DF, TID
  8. BUDESONIDE [Concomitant]
     Dosage: UNK UKN, UNK
     Route: 049
  9. DIOVAN [Concomitant]
     Dosage: 1 DF, QD
     Route: 048
  10. COUMADINE [Concomitant]
     Indication: ATRIAL FIBRILLATION
     Dosage: UNK UKN, UNK

REACTIONS (19)
  - Osteoporosis [Unknown]
  - Cataract [Unknown]
  - Cardiac failure congestive [Unknown]
  - Atrial fibrillation [Unknown]
  - Gastrointestinal haemorrhage [Unknown]
  - Anaemia [Not Recovered/Not Resolved]
  - Drug intolerance [Unknown]
  - Nausea [Unknown]
  - Fatigue [Recovered/Resolved]
  - Cough [Unknown]
  - Diarrhoea [Unknown]
  - Oedema [Unknown]
  - Vision blurred [Unknown]
  - Pain [Unknown]
  - Vertigo [Unknown]
  - Dyspepsia [Unknown]
  - Gastrooesophageal reflux disease [Unknown]
  - Headache [Recovered/Resolved]
  - Muscular weakness [Unknown]
